APPROVED DRUG PRODUCT: APIXABAN
Active Ingredient: APIXABAN
Strength: 5MG
Dosage Form/Route: TABLET;ORAL
Application: A210067 | Product #002
Applicant: MACLEODS PHARMACEUTICALS LTD
Approved: Feb 27, 2025 | RLD: No | RS: No | Type: DISCN